FAERS Safety Report 12279902 (Version 4)
Quarter: 2016Q2

REPORT INFORMATION
  Report Type: Spontaneous
  Country: JP (occurrence: JP)
  Receive Date: 20160418
  Receipt Date: 20160606
  Transmission Date: 20160815
  Serious: Yes (Other)
  Sender: FDA-Public Use
  Company Number: JP-BAUSCH-BL-2016-008401

PATIENT
  Age: 57 Year
  Sex: Male

DRUGS (1)
  1. VISUDYNE [Suspect]
     Active Substance: VERTEPORFIN
     Indication: CHORIORETINOPATHY
     Route: 042
     Dates: start: 20150611, end: 20150611

REACTIONS (6)
  - Retinal detachment [Recovered/Resolved]
  - Off label use [Recovered/Resolved]
  - Choroidal detachment [Recovered/Resolved]
  - Iris neovascularisation [Recovered/Resolved]
  - Anterior chamber inflammation [Recovered/Resolved]
  - Vitreous detachment [Recovered/Resolved]

NARRATIVE: CASE EVENT DATE: 20150611
